FAERS Safety Report 13079967 (Version 1)
Quarter: 2017Q1

REPORT INFORMATION
  Report Type: Spontaneous
  Country: US (occurrence: US)
  Receive Date: 20170103
  Receipt Date: 20170103
  Transmission Date: 20170428
  Serious: No
  Sender: FDA-Public Use
  Company Number: US-AMGEN-USASP2016182123

PATIENT
  Age: 56 Year
  Sex: Female

DRUGS (21)
  1. ENBREL [Suspect]
     Active Substance: ETANERCEPT
     Indication: RHEUMATOID ARTHRITIS
     Dosage: 50 MG, QWK
     Route: 058
     Dates: start: 20140707
  2. DIPHENHYDRAMINE. [Concomitant]
     Active Substance: DIPHENHYDRAMINE
  3. VYTORIN [Concomitant]
     Active Substance: EZETIMIBE\SIMVASTATIN
  4. ALLERGY RELIEF [Concomitant]
  5. ASTELIN [Concomitant]
     Active Substance: AZELASTINE HYDROCHLORIDE
  6. ALPRAZOLAM. [Concomitant]
     Active Substance: ALPRAZOLAM
  7. MVI [Concomitant]
     Active Substance: VITAMINS
  8. FLUTICASONE. [Concomitant]
     Active Substance: FLUTICASONE
  9. LISINOPRIL. [Concomitant]
     Active Substance: LISINOPRIL
  10. RESTASIS [Concomitant]
     Active Substance: CYCLOSPORINE
  11. ADVIL [Concomitant]
     Active Substance: IBUPROFEN
  12. CALCIUM CITRATE [Concomitant]
     Active Substance: CALCIUM CITRATE
  13. FISH OIL [Concomitant]
     Active Substance: FISH OIL
  14. CARISOPRODOL. [Concomitant]
     Active Substance: CARISOPRODOL
  15. CLARINEX-D [Concomitant]
     Active Substance: DESLORATADINE\PSEUDOEPHEDRINE SULFATE
  16. MUCUS RELIEF [Concomitant]
     Active Substance: GUAIFENESIN
  17. ALEVE [Concomitant]
     Active Substance: NAPROXEN SODIUM
  18. GLUCOSAMINE [Concomitant]
     Active Substance: GLUCOSAMINE
  19. ATORVASTATIN [Concomitant]
     Active Substance: ATORVASTATIN
  20. LEVOXYL [Concomitant]
     Active Substance: LEVOTHYROXINE SODIUM
  21. VITAMIN B12 [Concomitant]
     Active Substance: CYANOCOBALAMIN

REACTIONS (1)
  - Injection site pruritus [Unknown]

NARRATIVE: CASE EVENT DATE: 20161220
